FAERS Safety Report 19650473 (Version 4)
Quarter: 2022Q4

REPORT INFORMATION
  Report Type: Other
  Country: DE (occurrence: None)
  Receive Date: 20210803
  Receipt Date: 20221118
  Transmission Date: 20230112
  Serious: Yes (Hospitalization, Other)
  Sender: FDA-Public Use
  Company Number: DE-ROCHE-2812132

PATIENT
  Sex: Female

DRUGS (4)
  1. OCREVUS [Suspect]
     Active Substance: OCRELIZUMAB
     Indication: Relapsing-remitting multiple sclerosis
     Dosage: THEN 600 MG EVERY 168 DAYS
     Route: 042
     Dates: start: 20210127
  2. RAMIPRIL [Concomitant]
     Active Substance: RAMIPRIL
  3. PANTOPRAZOLE [Concomitant]
     Active Substance: PANTOPRAZOLE
  4. NOVALGIN (METAMIZOLE SODIUM) [Concomitant]
     Active Substance: METAMIZOLE SODIUM

REACTIONS (11)
  - Abdominal pain upper [Recovered/Resolved]
  - Hypertension [Recovered/Resolved]
  - Cholelithiasis [Recovered/Resolved]
  - Autoimmune disorder [Unknown]
  - Cyst rupture [Unknown]
  - Intra-abdominal fluid collection [Unknown]
  - Hypoaesthesia [Recovering/Resolving]
  - Ovarian cyst [Unknown]
  - Gastritis [Unknown]
  - Arthritis [Unknown]
  - Arrhythmia [Unknown]

NARRATIVE: CASE EVENT DATE: 20210411
